FAERS Safety Report 6701055-1 (Version None)
Quarter: 2010Q2

REPORT INFORMATION
  Report Type: 
  Country: None (occurrence: None)
  Receive Date: 20100428
  Receipt Date: 20100419
  Transmission Date: 20101027
  Serious: Yes (Other)
  Sender: FDA-Public Use
  Company Number: IT-GENENTECH-300966

PATIENT
  Age: 26 Year
  Sex: Female
  Weight: 48 kg

DRUGS (4)
  1. NUTROPIN [Suspect]
     Indication: GROWTH HORMONE DEFICIENCY
     Dosage: 0.8 MG, QD
     Route: 058
     Dates: start: 20040101, end: 20060601
  2. ETHINYL ESTRADIOL [Suspect]
     Indication: HORMONE REPLACEMENT THERAPY
     Dosage: 20 A?G, QDX21
     Dates: start: 20040101, end: 20080201
  3. PROGESTIN [Suspect]
     Indication: HORMONE REPLACEMENT THERAPY
     Dosage: 75 A?G, QD
     Dates: start: 20040101, end: 20080201
  4. LEVOTHYROXINE [Suspect]
     Indication: HORMONE REPLACEMENT THERAPY
     Dosage: 25 A?G, QD
     Dates: start: 20040101, end: 20080201

REACTIONS (1)
  - MALIGNANT MELANOMA [None]
